FAERS Safety Report 23913677 (Version 1)
Quarter: 2024Q2

REPORT INFORMATION
  Report Type: Spontaneous
  Country: KR (occurrence: KR)
  Receive Date: 20240529
  Receipt Date: 20240529
  Transmission Date: 20240716
  Serious: Yes (Death)
  Sender: FDA-Public Use
  Company Number: KR-ACTELION-A-CH2019-186578

PATIENT

DRUGS (4)
  1. BOSENTAN [Suspect]
     Active Substance: BOSENTAN
     Indication: Pulmonary arterial hypertension
     Route: 048
  2. OPSUMIT [Suspect]
     Active Substance: MACITENTAN
     Indication: Pulmonary arterial hypertension
     Route: 048
  3. SILDENAFIL [Suspect]
     Active Substance: SILDENAFIL
     Indication: Pulmonary arterial hypertension
     Route: 065
  4. BERAPROST [Suspect]
     Active Substance: BERAPROST
     Indication: Pulmonary arterial hypertension
     Route: 065

REACTIONS (5)
  - Sudden death [Fatal]
  - Death [Fatal]
  - Infection [Fatal]
  - Cardiac failure [Fatal]
  - Exposure during pregnancy [Fatal]
